FAERS Safety Report 6588223-7 (Version None)
Quarter: 2010Q1

REPORT INFORMATION
  Report Type: 
  Country: None (occurrence: None)
  Receive Date: 20100217
  Receipt Date: 20100217
  Transmission Date: 20100710
  Serious: Yes (Other)
  Sender: FDA-Public Use
  Company Number: None

PATIENT
  Sex: Female
  Weight: 46.8 kg

DRUGS (2)
  1. TYLENOL (CAPLET) [Suspect]
     Indication: HEADACHE
     Dosage: 2 GELCAPS 500MG (TOTAL OF 24) AS NECESSARY
     Dates: start: 20090801, end: 20091101
  2. TYLENOL (CAPLET) [Suspect]
     Indication: MUSCLE SPASMS
     Dosage: 2 GELCAPS 500MG (TOTAL OF 24) AS NECESSARY
     Dates: start: 20090801, end: 20091101

REACTIONS (11)
  - ABDOMINAL PAIN [None]
  - DECREASED APPETITE [None]
  - DEHYDRATION [None]
  - DIARRHOEA [None]
  - DIZZINESS [None]
  - HEADACHE [None]
  - MALAISE [None]
  - NAUSEA [None]
  - PRODUCT QUALITY ISSUE [None]
  - VOMITING [None]
  - WEIGHT DECREASED [None]
